FAERS Safety Report 20696866 (Version 1)
Quarter: 2022Q2

REPORT INFORMATION
  Report Type: Spontaneous
  Country: US (occurrence: US)
  Receive Date: 20220411
  Receipt Date: 20220411
  Transmission Date: 20220721
  Serious: No
  Sender: FDA-Public Use
  Company Number: US-Adamas_Pharmaceuticals-USA-POI1235202100062

PATIENT
  Age: 69 Year
  Sex: Male

DRUGS (2)
  1. OSMOLEX ER [Suspect]
     Active Substance: AMANTADINE
     Indication: Balance disorder
     Dates: start: 20210402, end: 20210406
  2. OSMOLEX ER [Suspect]
     Active Substance: AMANTADINE
     Indication: Dystonia
     Dates: start: 20210407, end: 20210430

REACTIONS (2)
  - Dry mouth [Recovering/Resolving]
  - Adverse event [Recovered/Resolved]

NARRATIVE: CASE EVENT DATE: 20210401
